FAERS Safety Report 8848261 (Version 1)
Quarter: 2012Q4

REPORT INFORMATION
  Report Type: 
  Country: US (occurrence: US)
  Receive Date: 20121018
  Receipt Date: 20121018
  Transmission Date: 20130627
  Serious: Yes (Death)
  Sender: FDA-Public Use
  Company Number: US-ROCHE-1141506

PATIENT
  Sex: Male

DRUGS (6)
  1. ERIVEDGE [Suspect]
     Indication: PRODUCT USED FOR UNKNOWN INDICATION
     Route: 065
  2. PLAVIX [Concomitant]
  3. FLOMAX [Concomitant]
  4. ASA [Concomitant]
  5. AVODART [Concomitant]
  6. DIOVAN [Concomitant]

REACTIONS (1)
  - Death [Fatal]
